FAERS Safety Report 10161232 (Version 2)
Quarter: 2014Q2

REPORT INFORMATION
  Report Type: Spontaneous
  Country: AT (occurrence: AT)
  Receive Date: 20140508
  Receipt Date: 20140610
  Transmission Date: 20141212
  Serious: Yes (Hospitalization)
  Sender: FDA-Public Use
  Company Number: PHHY2014AT056033

PATIENT
  Age: 63 Year
  Sex: Male

DRUGS (26)
  1. CLOZAPINE [Suspect]
     Indication: SCHIZOPHRENIA
     Dosage: 300 MG, DAILY
  2. CLOZAPINE [Suspect]
     Dosage: 50 MG, DAILY
  3. CLOZAPINE [Suspect]
     Dosage: 200 MG, PER DAY
  4. CLOZAPINE [Suspect]
     Dosage: 50 MG, PER DAY
  5. CLOZAPINE [Suspect]
     Dosage: 150 MG, PER DAY
  6. LORAZEPAM [Suspect]
     Indication: SCHIZOPHRENIA
     Dosage: 3 MG, PER DAY
  7. LORAZEPAM [Suspect]
     Dosage: 2 MG, PER DAY
  8. LORAZEPAM [Suspect]
     Dosage: 3 MG, PER DAY
  9. LORAZEPAM [Suspect]
     Dosage: 2 MG, PER DAY
  10. PREGABALIN [Suspect]
     Dosage: 300 MG, PER DAY
  11. QUETIAPINE [Concomitant]
     Indication: SCHIZOPHRENIA
  12. OLANZAPINE [Concomitant]
     Indication: SCHIZOPHRENIA
     Dosage: 10 MG, PER DAY
  13. OLANZAPINE [Concomitant]
     Dosage: 20 MG, PER DAY
  14. OLANZAPINE [Concomitant]
     Dosage: 25 MG, PER DAY
  15. LEVOFLOXACIN [Concomitant]
     Indication: SCHIZOPHRENIA
     Dosage: 500 MG, PER DAY
  16. GABAPENTIN [Concomitant]
     Indication: SCHIZOPHRENIA
     Dosage: 600 MG, PER DAY
  17. GABAPENTIN [Concomitant]
     Dosage: 300 MG, PER DAY
  18. GABAPENTIN [Concomitant]
     Dosage: 600 MG, PER DAY
  19. GABAPENTIN [Concomitant]
     Dosage: 300 MG, PER DAY
  20. AMOXICILLIN/CLAVULANIC ACID [Concomitant]
     Dosage: 3 G, PER DAY
  21. ENOXAPARIN SODIUM [Concomitant]
     Dosage: 160 MG, PER DAY
     Route: 058
  22. ACENOCOUMAROL [Concomitant]
     Route: 048
  23. AMLODIPINE [Concomitant]
     Dosage: 5 MG, PER DAY
  24. TIOTROPIUM [Concomitant]
     Dosage: 18 UG, PER DAY
     Route: 055
  25. PIPERACILLIN/TAZOBACTAM [Concomitant]
     Dosage: 4.5 G, TID
     Route: 051
  26. QUETIAPINE FUMARATE [Concomitant]
     Dosage: 800 MG, PER DAY

REACTIONS (14)
  - Pulmonary embolism [Unknown]
  - Dyspnoea [Unknown]
  - Tachypnoea [Unknown]
  - White blood cell count increased [Recovered/Resolved]
  - C-reactive protein increased [Unknown]
  - Somatisation disorder [Recovering/Resolving]
  - Nasopharyngitis [Unknown]
  - Condition aggravated [Unknown]
  - Pneumonia aspiration [Unknown]
  - Tachycardia [Unknown]
  - Sedation [Unknown]
  - Body temperature increased [Unknown]
  - Salivary hypersecretion [Unknown]
  - Pyrexia [Unknown]
